FAERS Safety Report 16444150 (Version 3)
Quarter: 2019Q3

REPORT INFORMATION
  Report Type: Report from Study
  Country: US (occurrence: US)
  Receive Date: 20190618
  Receipt Date: 20190905
  Transmission Date: 20191004
  Serious: Yes (Hospitalization)
  Sender: FDA-Public Use
  Company Number: US-KYOWAKIRIN-2019BKK008594

PATIENT

DRUGS (3)
  1. POTELIGEO [Suspect]
     Active Substance: MOGAMULIZUMAB-KPKC
     Indication: CUTANEOUS T-CELL LYMPHOMA
     Dosage: CYCLE 5
     Route: 042
  2. POTELIGEO [Suspect]
     Active Substance: MOGAMULIZUMAB-KPKC
     Dosage: 1MG/KG IV ON DAYS 1 AND 15 (EVERY 2 WEEKS)
     Route: 042
     Dates: start: 2019, end: 2019
  3. POTELIGEO [Suspect]
     Active Substance: MOGAMULIZUMAB-KPKC
     Dosage: UNK, 1X/WEEK
     Route: 042
     Dates: start: 201903, end: 2019

REACTIONS (9)
  - Pruritus [Unknown]
  - Skin exfoliation [Not Recovered/Not Resolved]
  - Mucosal inflammation [Not Recovered/Not Resolved]
  - Pain of skin [Unknown]
  - Skin induration [Not Recovered/Not Resolved]
  - Hospitalisation [Unknown]
  - Oropharyngeal discomfort [Not Recovered/Not Resolved]
  - Erythema [Unknown]
  - Rash generalised [Not Recovered/Not Resolved]

NARRATIVE: CASE EVENT DATE: 2019
